FAERS Safety Report 6315632-3 (Version None)
Quarter: 2009Q3

REPORT INFORMATION
  Report Type: 
  Country: None (occurrence: None)
  Receive Date: 20090818
  Receipt Date: 20090805
  Transmission Date: 20100115
  Serious: Yes (Hospitalization)
  Sender: FDA-Public Use
  Company Number: A-CH2009-26718

PATIENT
  Age: 20 Year
  Sex: Male

DRUGS (5)
  1. ZAVESCA [Suspect]
     Indication: NIEMANN-PICK DISEASE
     Dosage: 100 MG, TID, ORAL; 200 MG, TID, ORAL
     Route: 048
     Dates: start: 20090225, end: 20090531
  2. ZAVESCA [Suspect]
     Indication: NIEMANN-PICK DISEASE
     Dosage: 100 MG, TID, ORAL; 200 MG, TID, ORAL
     Route: 048
     Dates: start: 20090601
  3. LAMOTRIGINE [Concomitant]
  4. KEPPRA [Concomitant]
  5. VITAMINS NOS (VITAMINS NOS) [Concomitant]

REACTIONS (3)
  - RESPIRATORY ARREST [None]
  - SLEEP APNOEA SYNDROME [None]
  - SLEEP DISORDER [None]
